FAERS Safety Report 24599422 (Version 1)
Quarter: 2024Q4

REPORT INFORMATION
  Report Type: Spontaneous
  Country: US (occurrence: US)
  Receive Date: 20241110
  Receipt Date: 20241110
  Transmission Date: 20250114
  Serious: No
  Sender: SANOFI AVENTIS
  Company Number: US-SA-2024SA313377

PATIENT
  Sex: Female
  Weight: 72.73 kg

DRUGS (12)
  1. DUPIXENT [Suspect]
     Active Substance: DUPILUMAB
     Indication: Dermatitis atopic
     Dosage: 300 MG, QOW
     Route: 058
  2. FLUCONAZOLE [Concomitant]
     Active Substance: FLUCONAZOLE
  3. FLUOCINOLONE ACETONIDE [Concomitant]
     Active Substance: FLUOCINOLONE ACETONIDE
  4. AMOXICILLIN [Concomitant]
     Active Substance: AMOXICILLIN
  5. DOXYCYCLINE HYCLATE [Concomitant]
     Active Substance: DOXYCYCLINE HYCLATE
  6. PREDNISONE [Concomitant]
     Active Substance: PREDNISONE
  7. CLOBETASOL PROPIONATE [Concomitant]
     Active Substance: CLOBETASOL PROPIONATE
  8. IVERMECTIN [Concomitant]
     Active Substance: IVERMECTIN
  9. JUNEL FE 1/20 [Concomitant]
     Active Substance: ETHINYL ESTRADIOL\NORETHINDRONE ACETATE
  10. XIIDRA [Concomitant]
     Active Substance: LIFITEGRAST
  11. LIDOCAINE [Concomitant]
     Active Substance: LIDOCAINE
  12. MELOXICAM [Concomitant]
     Active Substance: MELOXICAM

REACTIONS (1)
  - Tooth infection [Unknown]
